FAERS Safety Report 6610987-4 (Version None)
Quarter: 2010Q1

REPORT INFORMATION
  Report Type: 
  Country: None (occurrence: None)
  Receive Date: 20100302
  Receipt Date: 20100219
  Transmission Date: 20100710
  Serious: Yes (Hospitalization)
  Sender: FDA-Public Use
  Company Number: JP-BRISTOL-MYERS SQUIBB COMPANY-14978852

PATIENT
  Age: 56 Year
  Sex: Male

DRUGS (2)
  1. ABILIFY [Suspect]
     Indication: SCHIZOPHRENIA
     Route: 048
  2. HALOPERIDOL [Concomitant]

REACTIONS (4)
  - AGITATION [None]
  - ALTERED STATE OF CONSCIOUSNESS [None]
  - MANIA [None]
  - WATER INTOXICATION [None]
